FAERS Safety Report 9659405 (Version 1)
Quarter: 2013Q4

REPORT INFORMATION
  Report Type: Spontaneous
  Country: CN (occurrence: CN)
  Receive Date: 20131031
  Receipt Date: 20131031
  Transmission Date: 20140711
  Serious: Yes (Other)
  Sender: FDA-Public Use
  Company Number: CN-JNJFOC-20131017625

PATIENT
  Sex: Male

DRUGS (1)
  1. INVEGA SUSTENNA [Suspect]
     Indication: SCHIZOPHRENIA
     Route: 030
     Dates: start: 201302

REACTIONS (3)
  - Suicidal ideation [Not Recovered/Not Resolved]
  - Injury [Not Recovered/Not Resolved]
  - Feeling abnormal [Not Recovered/Not Resolved]
